FAERS Safety Report 23259401 (Version 1)
Quarter: 2023Q4

REPORT INFORMATION
  Report Type: Spontaneous
  Country: US (occurrence: None)
  Receive Date: 20231204
  Receipt Date: 20231204
  Transmission Date: 20240110
  Serious: Yes (Hospitalization)
  Sender: FDA-Public Use
  Company Number: None

PATIENT
  Sex: Male

DRUGS (3)
  1. CAPECITABINE [Suspect]
     Active Substance: CAPECITABINE
     Indication: Bile duct cancer
     Dosage: 500MG TWICE DAILY  BY MOUTH
     Route: 048
     Dates: start: 202307
  2. CAPECITABINE [Suspect]
     Active Substance: CAPECITABINE
     Indication: Cholangiocarcinoma
  3. XELODA [Concomitant]
     Active Substance: CAPECITABINE

REACTIONS (2)
  - Gastrointestinal inflammation [None]
  - Nonspecific reaction [None]
